FAERS Safety Report 10232620 (Version 2)
Quarter: 2014Q3

REPORT INFORMATION
  Report Type: Spontaneous
  Country: US (occurrence: US)
  Receive Date: 20140612
  Receipt Date: 20140718
  Transmission Date: 20150326
  Serious: Yes (Other)
  Sender: FDA-Public Use
  Company Number: US-BAYER-2014-083802

PATIENT
  Age: 40 Year
  Sex: Female
  Weight: 63 kg

DRUGS (4)
  1. MIRENA [Suspect]
     Active Substance: LEVONORGESTREL
     Indication: CONTRACEPTION
     Dosage: 20 MCG/24HR, CONT
     Route: 015
     Dates: start: 2009, end: 2014
  2. ADDERALL [Concomitant]
     Active Substance: AMPHETAMINE ASPARTATE\AMPHETAMINE SULFATE\DEXTROAMPHETAMINE SACCHARATE\DEXTROAMPHETAMINE SULFATE
  3. VITAMIN C [Concomitant]
     Active Substance: ASCORBIC ACID
     Dosage: DAILY
  4. VITAMIN D [Concomitant]
     Active Substance: CHOLECALCIFEROL
     Dosage: ONCE A WEEK

REACTIONS (6)
  - Genital haemorrhage [Recovered/Resolved]
  - Procedural pain [None]
  - Amenorrhoea [None]
  - Abdominal pain lower [Recovered/Resolved]
  - Dyspareunia [Recovering/Resolving]
  - Vaginal discharge [None]
